FAERS Safety Report 6409225-7 (Version None)
Quarter: 2009Q4

REPORT INFORMATION
  Report Type: 
  Country: None (occurrence: None)
  Receive Date: 20091019
  Receipt Date: 20091013
  Transmission Date: 20100525
  Serious: Yes (Other)
  Sender: FDA-Public Use
  Company Number: 2009SP030267

PATIENT
  Age: 80 Year
  Sex: Female

DRUGS (1)
  1. MIRALAX [Suspect]
     Indication: CONSTIPATION
     Dosage: 17 GM; ONCE; PO
     Route: 048

REACTIONS (3)
  - ABDOMINAL PAIN [None]
  - BACK PAIN [None]
  - FAECES DISCOLOURED [None]
